FAERS Safety Report 8348167-7 (Version None)
Quarter: 2012Q2

REPORT INFORMATION
  Report Type: 
  Country: None (occurrence: None)
  Receive Date: 20120509
  Receipt Date: 20120430
  Transmission Date: 20120825
  Serious: Yes (Congenital Anomaly, Other)
  Sender: FDA-Public Use
  Company Number: DE-ABBOTT-12P-062-0931013-00

PATIENT
  Sex: Female

DRUGS (1)
  1. VALPROATE SODIUM [Suspect]
     Indication: MATERNAL EXPOSURE TIMING UNSPECIFIED
     Route: 064

REACTIONS (7)
  - ATTENTION DEFICIT/HYPERACTIVITY DISORDER [None]
  - CONGENITAL HEARING DISORDER [None]
  - FOETAL EXPOSURE DURING PREGNANCY [None]
  - ASTHMA [None]
  - MENTAL RETARDATION [None]
  - CLEFT PALATE [None]
  - NEURODERMATITIS [None]
